FAERS Safety Report 9848967 (Version 4)
Quarter: 2015Q3

REPORT INFORMATION
  Report Type: Spontaneous
  Country: US (occurrence: US)
  Receive Date: 20140128
  Receipt Date: 20150806
  Transmission Date: 20151125
  Serious: Yes (Other)
  Sender: FDA-Public Use
  Company Number: US-ASTELLAS-2011US008184

PATIENT
  Sex: Male

DRUGS (5)
  1. PROGRAF [Suspect]
     Active Substance: TACROLIMUS\TACROLIMUS ANHYDROUS
     Dosage: 1.5 MG IN THE MORNING AND 1 MG IN THE EVENING
  2. PROGRAF [Suspect]
     Active Substance: TACROLIMUS\TACROLIMUS ANHYDROUS
     Indication: RENAL TRANSPLANT
     Route: 065
     Dates: start: 200509
  3. CIPROFLOXACIN. [Concomitant]
     Active Substance: CIPROFLOXACIN
     Indication: PRODUCT USED FOR UNKNOWN INDICATION
     Route: 065
  4. PROGRAF [Suspect]
     Active Substance: TACROLIMUS\TACROLIMUS ANHYDROUS
     Route: 065
  5. SIROLIMUS. [Concomitant]
     Active Substance: SIROLIMUS
     Indication: RENAL TRANSPLANT
     Route: 065

REACTIONS (27)
  - Delusion [Unknown]
  - Amnesia [Unknown]
  - Ear infection [Not Recovered/Not Resolved]
  - Malaise [Unknown]
  - Vision blurred [Unknown]
  - Suicidal ideation [Unknown]
  - Psychiatric symptom [Unknown]
  - Reflexes abnormal [Unknown]
  - Immunosuppressant drug level increased [Unknown]
  - Disturbance in attention [Unknown]
  - Feeling abnormal [Unknown]
  - Night sweats [Unknown]
  - Oedema mouth [Unknown]
  - Tinnitus [Unknown]
  - Mental status changes [Recovering/Resolving]
  - Ear discomfort [Unknown]
  - Infection [Unknown]
  - Foreign body [Unknown]
  - Dental caries [Unknown]
  - Myalgia [Unknown]
  - Decreased appetite [Not Recovered/Not Resolved]
  - Asthenia [Unknown]
  - Self-medication [Unknown]
  - Tooth disorder [Unknown]
  - White blood cell count increased [Not Recovered/Not Resolved]
  - Infection susceptibility increased [Unknown]
  - Sinusitis [Unknown]

NARRATIVE: CASE EVENT DATE: 2011
